FAERS Safety Report 9517844 (Version 1)
Quarter: 2013Q3

REPORT INFORMATION
  Report Type: Report from Study
  Country: US (occurrence: US)
  Receive Date: 20130912
  Receipt Date: 20130912
  Transmission Date: 20140515
  Serious: Yes (Other)
  Sender: FDA-Public Use
  Company Number: US-ROCHE-1273148

PATIENT
  Sex: 0

DRUGS (6)
  1. RITUXIMAB [Suspect]
     Indication: WALDENSTROM^S MACROGLOBULINAEMIA
     Dosage: ON DAYS 2 AND 9
     Route: 065
  2. RITUXIMAB [Suspect]
     Dosage: MAINTENANCE CYCLES ON DAY 2
     Route: 065
  3. CARFILZOMIB [Suspect]
     Indication: WALDENSTROM^S MACROGLOBULINAEMIA
     Dosage: ON CYCLE 1
     Route: 042
  4. CARFILZOMIB [Suspect]
     Dosage: ON CYCLE 2 AND MAINTENANCE
     Route: 042
  5. DEXAMETHASONE [Suspect]
     Indication: WALDENSTROM^S MACROGLOBULINAEMIA
     Dosage: ON DAYS 1,2,8 AND 9
     Route: 042
  6. DEXAMETHASONE [Suspect]
     Dosage: MAINTENANCE CYCLES ON DAYS 1 AND 2
     Route: 042

REACTIONS (5)
  - Neutropenia [Unknown]
  - Febrile neutropenia [Unknown]
  - Azotaemia [Unknown]
  - Blood immunoglobulin M increased [Unknown]
  - Anaemia [Unknown]
